FAERS Safety Report 9257312 (Version 1)
Quarter: 2013Q1

REPORT INFORMATION
  Report Type: Spontaneous
  Country: US (occurrence: None)
  Receive Date: 20121212
  Receipt Date: 20121212
  Transmission Date: 20140127
  Serious: No
  Sender: FDA-Public Use
  Company Number: 1210USA002829

PATIENT
  Age: 58 Year
  Sex: Male

DRUGS (10)
  1. VICTRELIS [Suspect]
     Indication: HEPATITIS C
     Dates: start: 20121002
  2. PEGASYS [Suspect]
  3. RIBAPAK [Suspect]
  4. IRON (UNSPECIFIED) (IRON (UNSPECIFIED)) [Concomitant]
  5. TRUVADA (EMTRICITABINE, TENOFOVIR DISOPROXIL FUMARATE) [Concomitant]
  6. ASPIRIN (ASPIRIN) [Concomitant]
  7. POTASSIUM (UNSPECIFIED) (POTASSIUM (UNSPECIFIED)) [Concomitant]
  8. JANUVIA (SITAGLIPTIN PHOSPHATE) [Concomitant]
  9. METOPROLOL (METOPROLOL) [Concomitant]
  10. VITAMINS (UNSPECIFIED) (VITAMINS (UNSPECIFIED)) [Concomitant]

REACTIONS (3)
  - Dizziness [None]
  - Fatigue [None]
  - Influenza like illness [None]
